FAERS Safety Report 4686797-4 (Version None)
Quarter: 2005Q2

REPORT INFORMATION
  Report Type: 
  Country: None (occurrence: None)
  Receive Date: 20050608
  Receipt Date: 20050526
  Transmission Date: 20051028
  Serious: Yes (Other)
  Sender: FDA-Public Use
  Company Number: 2005053713

PATIENT
  Age: 42 Year
  Sex: Female
  Weight: 64 kg

DRUGS (2)
  1. SOMAVERT [Suspect]
     Indication: ACROMEGALY
     Dosage: SUBCUTANEOUS
     Route: 058
     Dates: start: 20040922, end: 20050207
  2. LEVOTHYROXINE SODIUM [Concomitant]

REACTIONS (1)
  - CYTOLYTIC HEPATITIS [None]
